FAERS Safety Report 6924466-8 (Version None)
Quarter: 2010Q3

REPORT INFORMATION
  Report Type: 
  Country: None (occurrence: None)
  Receive Date: 20100810
  Receipt Date: 20100804
  Transmission Date: 20110219
  Serious: Yes (Death)
  Sender: FDA-Public Use
  Company Number: 2009SP034758

PATIENT
  Age: 49 Year
  Sex: Female

DRUGS (12)
  1. TEMODAL [Suspect]
     Indication: GLIOBLASTOMA
     Dosage: 150 MG/M2 PO; 75 MG/M2 PO; 150 MG/M2 PO
     Route: 048
     Dates: start: 20060601, end: 20060607
  2. TEMODAL [Suspect]
     Indication: GLIOBLASTOMA
     Dosage: 150 MG/M2 PO; 75 MG/M2 PO; 150 MG/M2 PO
     Route: 048
     Dates: start: 20060608, end: 20060726
  3. TEMODAL [Suspect]
     Indication: GLIOBLASTOMA
     Dosage: 150 MG/M2 PO; 75 MG/M2 PO; 150 MG/M2 PO
     Route: 048
     Dates: start: 20060901, end: 20061027
  4. INDOMETHACIN [Suspect]
     Indication: GLIOBLASTOMA
     Dosage: 25 MG BID
     Dates: start: 20060601, end: 20060607
  5. INDOMETHACIN [Suspect]
     Indication: GLIOBLASTOMA
     Dosage: 25 MG BID
     Dates: start: 20060608, end: 20060726
  6. INDOMETHACIN [Suspect]
     Indication: GLIOBLASTOMA
     Dosage: 25 MG BID
     Dates: start: 20060901, end: 20061027
  7. DEXAMETHASONE [Concomitant]
  8. PANTOPRAZOLE SODIUM [Concomitant]
  9. QUETIAPIN [Concomitant]
  10. MIRTAZAPINE [Concomitant]
  11. LORAZEPAM [Concomitant]
  12. INSULIN [Concomitant]

REACTIONS (2)
  - PNEUMONIA CYTOMEGALOVIRAL [None]
  - RESPIRATORY FAILURE [None]
